FAERS Safety Report 8146233-2 (Version None)
Quarter: 2012Q1

REPORT INFORMATION
  Report Type: 
  Country: None (occurrence: None)
  Receive Date: 20120217
  Receipt Date: 20110816
  Transmission Date: 20120608
  Serious: No
  Sender: FDA-Public Use
  Company Number: US-ABBOTT-11P-163-0847104-00

PATIENT
  Age: 85 Year
  Sex: Female
  Weight: 60.836 kg

DRUGS (3)
  1. CARVEDILOL [Concomitant]
     Indication: BLOOD PRESSURE
  2. SIMCOR [Suspect]
     Indication: BLOOD CHOLESTEROL INCREASED
     Dosage: 500/20 MG, 1 IN 1 DAY
     Dates: start: 20110101
  3. UNKNOWN MEDICATION [Concomitant]
     Indication: BONE DISORDER
     Dosage: WEEKLY

REACTIONS (1)
  - ABDOMINAL PAIN [None]
